FAERS Safety Report 16475266 (Version 1)
Quarter: 2019Q2

REPORT INFORMATION
  Report Type: Spontaneous
  Country: US (occurrence: US)
  Receive Date: 20190625
  Receipt Date: 20190625
  Transmission Date: 20190711
  Serious: No
  Sender: FDA-Public Use
  Company Number: US-SA-2019SA167004

PATIENT
  Sex: Female

DRUGS (2)
  1. LANTUS [Suspect]
     Active Substance: INSULIN GLARGINE
     Indication: TYPE 2 DIABETES MELLITUS
     Dosage: 20 U, HS
     Route: 065
     Dates: start: 20190613
  2. ATENOLOL. [Concomitant]
     Active Substance: ATENOLOL
     Indication: BLOOD PRESSURE MEASUREMENT

REACTIONS (7)
  - Peripheral swelling [Unknown]
  - Drug ineffective [Unknown]
  - Blood glucose increased [Unknown]
  - Feeling abnormal [Unknown]
  - Depression [Unknown]
  - Disturbance in attention [Unknown]
  - Vision blurred [Unknown]
